FAERS Safety Report 9720044 (Version 2)
Quarter: 2014Q1

REPORT INFORMATION
  Report Type: Report from Study
  Country: GB (occurrence: GB)
  Receive Date: 20131128
  Receipt Date: 20140129
  Transmission Date: 20141002
  Serious: Yes (Hospitalization)
  Sender: FDA-Public Use
  Company Number: GB-BRISTOL-MYERS SQUIBB COMPANY-19847037

PATIENT
  Age: 69 Year
  Sex: Male

DRUGS (12)
  1. IPILIMUMAB [Suspect]
     Indication: SMALL CELL LUNG CANCER
     Dosage: DATE OF MOST RECENT ADMINISTRATION : 20SEP13
     Dates: start: 20130920
  2. CARBOPLATIN [Suspect]
     Indication: SMALL CELL LUNG CANCER
     Dosage: DATE OF RECENT ADMINISTRATION : 20SEP13
     Dates: start: 20130809
  3. ETOPOSIDE [Suspect]
     Indication: SMALL CELL LUNG CANCER
     Dosage: DATE OF MOST RECENT ADMINISTRATION : 20SEP13?200MG-ORAL-22SEP2013
     Route: 042
     Dates: start: 20130809
  4. SIMVASTATIN [Concomitant]
     Route: 048
     Dates: start: 199908
  5. INSULIN [Concomitant]
     Route: 058
     Dates: start: 20131113
  6. OMEPRAZOLE [Concomitant]
     Route: 048
     Dates: start: 20131010
  7. PREDNISOLONE [Concomitant]
     Route: 048
     Dates: start: 20131105
  8. FORTISIP [Concomitant]
     Dosage: 1 DF : 3 TABLETS
     Route: 048
     Dates: start: 20131011
  9. CHOLESTYRAMINE [Concomitant]
     Dosage: 1 DF : 2 TABLETS
     Route: 048
     Dates: start: 20131107
  10. BIMATOPROST [Concomitant]
     Dosage: 1 DF : 2 DROPS?4-1 DROPS TO BOTH EYES AT NIGHT
     Dates: start: 20131016
  11. ADCAL [Concomitant]
     Dosage: 1 DF : 1 TABLETS
     Route: 048
     Dates: start: 20131113
  12. LOPERAMIDE [Concomitant]
     Route: 048
     Dates: start: 20131012, end: 20131112

REACTIONS (1)
  - Hyperglycaemia [Recovered/Resolved with Sequelae]
